FAERS Safety Report 5119650-2 (Version None)
Quarter: 2006Q3

REPORT INFORMATION
  Report Type: 
  Country: None (occurrence: None)
  Receive Date: 20060929
  Receipt Date: 20060919
  Transmission Date: 20061208
  Serious: Yes (Other)
  Sender: FDA-Public Use
  Company Number: 2006112828

PATIENT
  Sex: Male

DRUGS (3)
  1. GEODON [Suspect]
  2. CYMBALTA [Suspect]
  3. KLONOPIN [Suspect]

REACTIONS (3)
  - AGITATION [None]
  - MULTIPLE DRUG OVERDOSE INTENTIONAL [None]
  - SUICIDAL BEHAVIOUR [None]
